FAERS Safety Report 13298425 (Version 1)
Quarter: 2017Q1

REPORT INFORMATION
  Report Type: Spontaneous
  Country: US (occurrence: US)
  Receive Date: 20170306
  Receipt Date: 20170306
  Transmission Date: 20170428
  Serious: No
  Sender: FDA-Public Use
  Company Number: None

PATIENT
  Age: 71 Year
  Sex: Male
  Weight: 90.8 kg

DRUGS (5)
  1. ACETONIDE OINTMENT [Concomitant]
     Active Substance: TRIAMCINOLONE ACETONIDE
  2. METOPROLOL. [Concomitant]
     Active Substance: METOPROLOL
  3. LISINOPRIL. [Concomitant]
     Active Substance: LISINOPRIL
  4. JUICE PLUS (FRUITS + VEG) [Concomitant]
  5. KIRKLAND SIGNATURE PRO-COMPLETE PLUS WHITENING [Suspect]
     Active Substance: SODIUM FLUORIDE
     Indication: DENTAL DISORDER PROPHYLAXIS
     Dates: start: 201604, end: 20160620

REACTIONS (1)
  - Dermatitis allergic [None]
